FAERS Safety Report 14947940 (Version 6)
Quarter: 2019Q1

REPORT INFORMATION
  Report Type: Spontaneous
  Country: JP (occurrence: JP)
  Receive Date: 20180529
  Receipt Date: 20190307
  Transmission Date: 20190417
  Serious: Yes (Death, Other)
  Sender: FDA-Public Use
  Company Number: PHJP2018JP003614

PATIENT
  Age: 73 Year
  Sex: Female
  Weight: 72.5 kg

DRUGS (10)
  1. BIO-THREE [Concomitant]
     Active Substance: HERBALS
     Indication: CONSTIPATION
     Dosage: 1 DF, TID
     Route: 048
  2. AZILVA [Concomitant]
     Active Substance: AZILSARTAN KAMEDOXOMIL
     Indication: HYPERTENSION
     Dosage: 20 MG, QD
     Route: 048
     Dates: start: 20170607
  3. VOTRIENT [Suspect]
     Active Substance: PAZOPANIB HYDROCHLORIDE
     Indication: SOFT TISSUE SARCOMA
     Dosage: 200 MG, QD
     Route: 048
     Dates: start: 20170605, end: 20180214
  4. SELOKEN [Concomitant]
     Active Substance: METOPROLOL
     Indication: HYPERTENSION
     Dosage: 20 MG, BID
     Route: 048
  5. FAMOTIDINE. [Concomitant]
     Active Substance: FAMOTIDINE
     Indication: CHRONIC GASTRITIS
     Dosage: 20 MG, BID
     Route: 048
  6. BETAHISTINE MESILATE [Concomitant]
     Active Substance: BETAHISTINE MESILATE
     Indication: MENIERE^S DISEASE
     Dosage: 6 MG, BID
     Route: 048
  7. VOTRIENT [Suspect]
     Active Substance: PAZOPANIB HYDROCHLORIDE
     Indication: ANGIOSARCOMA
     Dosage: 800 MG, QD
     Route: 048
     Dates: start: 201606, end: 201611
  8. VOTRIENT [Suspect]
     Active Substance: PAZOPANIB HYDROCHLORIDE
     Dosage: UNK
     Route: 048
     Dates: end: 201901
  9. FEBURIC [Concomitant]
     Active Substance: FEBUXOSTAT
     Indication: HYPERURICAEMIA
     Dosage: 10 MG, QD
     Route: 048
  10. NIFEDIPINE. [Concomitant]
     Active Substance: NIFEDIPINE
     Indication: HYPERTENSION
     Dosage: 20 MG, BID
     Route: 048
     Dates: start: 20170607

REACTIONS (10)
  - Malignant neoplasm progression [Fatal]
  - Hypothyroidism [Recovering/Resolving]
  - Generalised oedema [Unknown]
  - Angiosarcoma [Fatal]
  - Soft tissue sarcoma [Fatal]
  - Proteinuria [Recovering/Resolving]
  - Nephrotic syndrome [Recovering/Resolving]
  - Ascites [Unknown]
  - Oedema [Unknown]
  - Hyperthyroidism [Recovering/Resolving]

NARRATIVE: CASE EVENT DATE: 20170712
